FAERS Safety Report 24993879 (Version 2)
Quarter: 2025Q1

REPORT INFORMATION
  Report Type: Spontaneous
  Country: US (occurrence: US)
  Receive Date: 20250221
  Receipt Date: 20250225
  Transmission Date: 20250408
  Serious: No
  Sender: ABBVIE
  Company Number: US-ABBVIE-6137153

PATIENT
  Age: 68 Year
  Sex: Male

DRUGS (1)
  1. ALPHAGAN P [Suspect]
     Active Substance: BRIMONIDINE TARTRATE
     Indication: Glaucoma
     Route: 047
     Dates: start: 1996

REACTIONS (5)
  - Eye infection [Not Recovered/Not Resolved]
  - Ocular hyperaemia [Unknown]
  - Epistaxis [Recovered/Resolved]
  - Lacrimation increased [Unknown]
  - Product contamination [Not Recovered/Not Resolved]

NARRATIVE: CASE EVENT DATE: 20250203
